FAERS Safety Report 25677813 (Version 1)
Quarter: 2025Q3

REPORT INFORMATION
  Report Type: Spontaneous
  Country: EU (occurrence: EU)
  Receive Date: 20250813
  Receipt Date: 20250813
  Transmission Date: 20251021
  Serious: Yes (Hospitalization, Other)
  Sender: TAKEDA
  Company Number: EU-TAKEDA-2025TUS071251

PATIENT
  Age: 55 Year
  Sex: Male

DRUGS (4)
  1. FEBUXOSTAT [Suspect]
     Active Substance: FEBUXOSTAT
     Indication: Gout
     Dosage: 80 MILLIGRAM, QD
  2. Heparegen [Concomitant]
     Dosage: 100 MILLIGRAM, TID
  3. HYDROCHLOROTHIAZIDE\VALSARTAN [Concomitant]
     Active Substance: HYDROCHLOROTHIAZIDE\VALSARTAN
     Indication: Hypertensive heart disease
     Dosage: 12,5/160 MILLIGRAM, QD
  4. Concoram [Concomitant]
     Indication: Hypertension
     Dosage: 10/10 MILLIGRAM, QD

REACTIONS (2)
  - Lower gastrointestinal haemorrhage [Unknown]
  - Asthenia [Unknown]

NARRATIVE: CASE EVENT DATE: 20210705
